FAERS Safety Report 7216275-X (Version None)
Quarter: 2011Q1

REPORT INFORMATION
  Report Type: 
  Country: None (occurrence: None)
  Receive Date: 20110107
  Receipt Date: 20110103
  Transmission Date: 20110831
  Serious: No
  Sender: FDA-Public Use
  Company Number: US-ROXANE LABORATORIES, INC.-2011-RO-00010RO

PATIENT
  Sex: Female

DRUGS (1)
  1. DEXAMETHASONE [Suspect]

REACTIONS (2)
  - MEMORY IMPAIRMENT [None]
  - MENTAL DISORDER [None]
